FAERS Safety Report 9499758 (Version 1)
Quarter: 2013Q1

REPORT INFORMATION
  Report Type: Spontaneous
  Country: US (occurrence: None)
  Receive Date: 20130118
  Receipt Date: 20130118
  Transmission Date: 20140127
  Serious: No
  Sender: FDA-Public Use
  Company Number: A-US2012-61081

PATIENT
  Age: 55 Year
  Sex: Female

DRUGS (3)
  1. TRACLEER [Suspect]
     Indication: PULMONARY ARTERIAL HYPERTENSION
     Route: 048
     Dates: start: 200906
  2. CALCIUM CHANNEL BLOCKERS [Concomitant]
  3. REVATIO (SILDENAFIL CITRATE) [Concomitant]

REACTIONS (6)
  - Pneumonia [None]
  - Oxygen saturation decreased [None]
  - Liver function test abnormal [None]
  - Tracheostomy [None]
  - Condition aggravated [None]
  - Respiratory distress [None]
